FAERS Safety Report 5065325-8 (Version None)
Quarter: 2006Q3

REPORT INFORMATION
  Report Type: 
  Country: None (occurrence: None)
  Receive Date: 20060731
  Receipt Date: 20060720
  Transmission Date: 20061208
  Serious: Yes (Death)
  Sender: FDA-Public Use
  Company Number: US-JNJFOC-20060602188

PATIENT
  Sex: Female

DRUGS (1)
  1. ORTHO EVRA [Suspect]
     Indication: CONTRACEPTION
     Route: 062
     Dates: start: 20030801, end: 20040701

REACTIONS (6)
  - ANTIPHOSPHOLIPID SYNDROME [None]
  - MESENTERIC VEIN THROMBOSIS [None]
  - PORTAL VEIN THROMBOSIS [None]
  - PULMONARY EMBOLISM [None]
  - PULMONARY HYPERTENSION [None]
  - THROMBOTIC THROMBOCYTOPENIC PURPURA [None]
